FAERS Safety Report 8394023-8 (Version None)
Quarter: 2012Q2

REPORT INFORMATION
  Report Type: 
  Country: None (occurrence: None)
  Receive Date: 20120530
  Receipt Date: 20120524
  Transmission Date: 20120825
  Serious: Yes (Hospitalization, Other)
  Sender: FDA-Public Use
  Company Number: JP-JNJFOC-20120409308

PATIENT
  Sex: Female
  Weight: 47 kg

DRUGS (8)
  1. SIMPONI [Suspect]
     Indication: RHEUMATOID ARTHRITIS
     Route: 058
     Dates: start: 20120306
  2. LEVOTHYROXINE SODIUM [Concomitant]
     Route: 048
  3. SIMPONI [Suspect]
     Route: 058
     Dates: start: 20111111, end: 20120209
  4. ETODOLAC [Concomitant]
     Indication: RHEUMATOID ARTHRITIS
     Route: 048
  5. VITAMIN B12 [Concomitant]
     Route: 048
  6. BONOTEO [Concomitant]
     Route: 048
  7. RIMATIL [Suspect]
     Indication: RHEUMATOID ARTHRITIS
     Route: 048
  8. LANSOPRAZOLE [Concomitant]
     Route: 048

REACTIONS (2)
  - INTERSTITIAL LUNG DISEASE [None]
  - SKIN ULCER [None]
